FAERS Safety Report 7951803-8 (Version None)
Quarter: 2011Q4

REPORT INFORMATION
  Report Type: 
  Country: None (occurrence: None)
  Receive Date: 20111201
  Receipt Date: 20111121
  Transmission Date: 20120403
  Serious: Yes (Hospitalization, Other)
  Sender: FDA-Public Use
  Company Number: US-SANOFI-AVENTIS-2010SA048964

PATIENT
  Age: 74 Year
  Sex: Female

DRUGS (6)
  1. SOLOSTAR [Suspect]
     Dates: start: 20090101
  2. SOLOSTAR [Suspect]
     Dates: start: 20090101
  3. LANTUS [Suspect]
     Dosage: DOSE:28 UNIT(S)
     Route: 058
     Dates: start: 20090101
  4. LANTUS [Suspect]
     Dosage: DOSE:28 UNIT(S)
     Route: 058
     Dates: start: 20090101
  5. SOLOSTAR [Suspect]
     Dates: start: 20090101
  6. LANTUS [Suspect]
     Dosage: DOSE:28 UNIT(S)
     Route: 058
     Dates: start: 20090101

REACTIONS (10)
  - DEVICE MALFUNCTION [None]
  - ARTHRALGIA [None]
  - INCORRECT DOSE ADMINISTERED BY DEVICE [None]
  - STRESS FRACTURE [None]
  - BALANCE DISORDER [None]
  - NEEDLE ISSUE [None]
  - FALL [None]
  - FOOT FRACTURE [None]
  - LIQUID PRODUCT PHYSICAL ISSUE [None]
  - KNEE ARTHROPLASTY [None]
